FAERS Safety Report 6986009-2 (Version None)
Quarter: 2010Q3

REPORT INFORMATION
  Report Type: 
  Country: None (occurrence: None)
  Receive Date: 20100915
  Receipt Date: 20100908
  Transmission Date: 20110219
  Serious: Yes (Other)
  Sender: FDA-Public Use
  Company Number: US-ABBOTT-10P-163-0669125-00

PATIENT
  Sex: Male

DRUGS (1)
  1. DEPAKOTE ER [Suspect]
     Indication: MENTAL DISORDER
     Dates: start: 19980101, end: 19980101

REACTIONS (17)
  - ADDISON'S DISEASE [None]
  - ALOPECIA [None]
  - DERMATITIS [None]
  - GASTRIC DILATATION [None]
  - GASTRITIS [None]
  - GASTRITIS EROSIVE [None]
  - GASTROOESOPHAGEAL SPHINCTER INSUFFICIENCY [None]
  - GENERALISED OEDEMA [None]
  - GINGIVITIS [None]
  - HAEMORRHOIDS [None]
  - HORMONE LEVEL ABNORMAL [None]
  - MINERAL DEFICIENCY [None]
  - OEDEMA [None]
  - OESOPHAGEAL DISORDER [None]
  - SKIN DISORDER [None]
  - SLEEP APNOEA SYNDROME [None]
  - TYPE 2 DIABETES MELLITUS [None]
